FAERS Safety Report 12759796 (Version 2)
Quarter: 2016Q3

REPORT INFORMATION
  Report Type: Report from Study
  Country: CA (occurrence: CA)
  Receive Date: 20160919
  Receipt Date: 20160922
  Transmission Date: 20161109
  Serious: No
  Sender: FDA-Public Use
  Company Number: CA-JNJFOC-20160909583

PATIENT
  Age: 49 Year
  Sex: Female
  Weight: 50.4 kg

DRUGS (1)
  1. REMICADE [Suspect]
     Active Substance: INFLIXIMAB
     Indication: ACUTE FEBRILE NEUTROPHILIC DERMATOSIS
     Route: 042
     Dates: start: 20160217, end: 20160907

REACTIONS (3)
  - Product use issue [Unknown]
  - Off label use [Unknown]
  - Biopsy site unspecified abnormal [Unknown]

NARRATIVE: CASE EVENT DATE: 20160217
